FAERS Safety Report 7804240-0 (Version None)
Quarter: 2011Q4

REPORT INFORMATION
  Report Type: 
  Country: None (occurrence: None)
  Receive Date: 20111010
  Receipt Date: 20110927
  Transmission Date: 20120403
  Serious: Yes (Death, Life-Threatening, Hospitalization)
  Sender: FDA-Public Use
  Company Number: PHHY2010MX80956

PATIENT
  Sex: Male

DRUGS (4)
  1. DIOVAN HCT [Suspect]
  2. ESTIGLOS [Concomitant]
     Indication: DIABETES MELLITUS
     Dosage: UNK
  3. DINVIT [Concomitant]
     Indication: DIABETES MELLITUS
     Dosage: UNK
  4. EXFORGE [Suspect]
     Indication: HYPERTENSION
     Dosage: 1 DF, (VALSARTAN 160, AMLODIPINE 10), DAILY
     Route: 048
     Dates: start: 20100901, end: 20101101

REACTIONS (1)
  - HYPOGLYCAEMIC COMA [None]
